FAERS Safety Report 13617774 (Version 1)
Quarter: 2017Q2

REPORT INFORMATION
  Report Type: Spontaneous
  Country: US (occurrence: US)
  Receive Date: 20170606
  Receipt Date: 20170606
  Transmission Date: 20170830
  Serious: Yes (Hospitalization, Other)
  Sender: FDA-Public Use
  Company Number: US-HERITAGE PHARMACEUTICALS-2017HTG00134

PATIENT
  Sex: Female
  Weight: 40.82 kg

DRUGS (3)
  1. ATORVASTATIN [Concomitant]
     Active Substance: ATORVASTATIN
  2. AMIODARONE [Concomitant]
     Active Substance: AMIODARONE
  3. ACYCLOVIR. [Suspect]
     Active Substance: ACYCLOVIR
     Indication: HERPES ZOSTER
     Dosage: 400 MG, 1X/DAY
     Route: 048
     Dates: start: 2010

REACTIONS (9)
  - Pathogen resistance [Unknown]
  - Cardiac pacemaker insertion [Recovered/Resolved]
  - Intentional product misuse [Not Recovered/Not Resolved]
  - Non-Hodgkin^s lymphoma [Unknown]
  - Heart rate irregular [Unknown]
  - Cystitis [Unknown]
  - Renal impairment [Unknown]
  - Pruritus [Not Recovered/Not Resolved]
  - Neuropathy peripheral [Not Recovered/Not Resolved]

NARRATIVE: CASE EVENT DATE: 2010
